FAERS Safety Report 14433036 (Version 1)
Quarter: 2018Q1

REPORT INFORMATION
  Report Type: Spontaneous
  Country: US (occurrence: US)
  Receive Date: 20180124
  Receipt Date: 20180124
  Transmission Date: 20180509
  Serious: No
  Sender: FDA-Public Use
  Company Number: US-PFIZER INC-2018030559

PATIENT
  Sex: Female

DRUGS (2)
  1. GABAPENTIN. [Suspect]
     Active Substance: GABAPENTIN
  2. LYRICA [Suspect]
     Active Substance: PREGABALIN

REACTIONS (3)
  - Drug withdrawal syndrome [Unknown]
  - Tremor [Unknown]
  - Product use issue [Unknown]
